FAERS Safety Report 8270159-7 (Version None)
Quarter: 2012Q2

REPORT INFORMATION
  Report Type: 
  Country: None (occurrence: None)
  Receive Date: 20120410
  Receipt Date: 20120331
  Transmission Date: 20120825
  Serious: Yes (Hospitalization)
  Sender: FDA-Public Use
  Company Number: PHHY2012DE028400

PATIENT
  Sex: Female
  Weight: 89 kg

DRUGS (24)
  1. EXFORGE [Suspect]
     Indication: HYPERTENSION
     Dosage: 1 DF, UNK
     Route: 048
  2. FUROSEMIDE [Suspect]
     Indication: RENAL FAILURE
     Dosage: 500 MG, UNK
     Route: 048
     Dates: start: 20060831
  3. XIPAMIDE [Suspect]
     Indication: CARDIAC FAILURE
     Dosage: 40 MG, UNK
     Dates: start: 20061205
  4. LANTUS [Suspect]
     Indication: DIABETES MELLITUS
     Dosage: 0-0-28/DAY
     Route: 058
  5. VASODILATORS USED IN CARDIAC DISEASES [Concomitant]
     Dosage: UNK
     Dates: end: 20100422
  6. NITRATES [Concomitant]
  7. LASIX [Suspect]
     Indication: RENAL FAILURE
     Dosage: 500 MG, UNK
     Route: 048
     Dates: start: 20060831
  8. RASILEZ [Suspect]
     Dosage: 300 MG, DAILY
     Dates: start: 20091202
  9. DIGITOXIN TAB [Suspect]
     Indication: CARDIAC FAILURE
  10. ACTRAPID HUMAN [Suspect]
     Dosage: 26-10-10/DAY
     Route: 058
  11. ANTIHYPERTENSIVES [Concomitant]
     Dosage: UNK
     Dates: start: 20110516
  12. ANTIDEPRESSANTS [Concomitant]
  13. ORAL ANTIDIABETICS [Concomitant]
     Indication: DIABETES MELLITUS
  14. RASILEZ [Suspect]
     Indication: HYPERTENSION
     Dosage: 150 MG DAILY
     Dates: start: 20081210, end: 20091202
  15. ASPIRIN [Suspect]
     Indication: COAGULOPATHY
     Dosage: 1 DF, UNK
     Route: 048
     Dates: start: 20011025
  16. ALDOSTERONE ANTAGONISTS [Concomitant]
  17. HMG COA REDUCTASE INHIBITORS [Concomitant]
  18. CARVEDILOL [Suspect]
     Indication: HYPERTENSION
     Dosage: 50 MG, UNK
     Route: 048
     Dates: start: 20060831
  19. PANTOPRAZOLE [Suspect]
     Dosage: 20 MG, UNK
     Dates: start: 20110418
  20. ACTRAPID HUMAN [Suspect]
     Dosage: 34-10-10/DAY
     Route: 058
  21. ALPHA-RECEPTOR BLOCKER [Concomitant]
  22. ACTRAPID HUMAN [Suspect]
     Indication: DIABETES MELLITUS
     Dosage: 26-6-8/DAY
     Route: 058
  23. DIGITOXIN TAB [Suspect]
     Indication: ATRIAL FIBRILLATION
     Dosage: 1 DF, UNK
     Dates: start: 20060831
  24. LANTUS [Suspect]
     Dosage: 0-0-30/DAY
     Route: 058

REACTIONS (5)
  - CORONARY ARTERY DISEASE [None]
  - TRANSIENT ISCHAEMIC ATTACK [None]
  - DEPRESSION [None]
  - CARDIAC FAILURE [None]
  - RIGHT VENTRICULAR FAILURE [None]
